FAERS Safety Report 11105816 (Version 1)
Quarter: 2015Q2

REPORT INFORMATION
  Report Type: Spontaneous
  Country: FR (occurrence: FR)
  Receive Date: 20150512
  Receipt Date: 20150512
  Transmission Date: 20150821
  Serious: Yes (Life-Threatening)
  Sender: FDA-Public Use
  Company Number: FR-ELI_LILLY_AND_COMPANY-FR201505000947

PATIENT
  Age: 31 Year
  Sex: Female

DRUGS (4)
  1. ZYPREXA [Suspect]
     Active Substance: OLANZAPINE
     Dosage: 20 MG, QD
     Dates: start: 20150316, end: 20150418
  2. ZYPREXA [Suspect]
     Active Substance: OLANZAPINE
     Indication: SCHIZOPHRENIA
     Dosage: 20 MG, QD
     Route: 048
     Dates: start: 201402, end: 201404
  3. ZYPREXA [Suspect]
     Active Substance: OLANZAPINE
     Dosage: 30 MG, QD
     Route: 048
     Dates: start: 20150101, end: 20150315
  4. ACETAMINOPHEN. [Suspect]
     Active Substance: ACETAMINOPHEN
     Indication: PRODUCT USED FOR UNKNOWN INDICATION
     Dosage: 1 DF, QD
     Route: 048
     Dates: start: 20150413, end: 20150418

REACTIONS (3)
  - Hepatitis fulminant [Recovering/Resolving]
  - Pancreatitis acute [Recovering/Resolving]
  - Prescribed overdose [Recovered/Resolved]

NARRATIVE: CASE EVENT DATE: 20150418
